FAERS Safety Report 5906956-X (Version None)
Quarter: 2008Q4

REPORT INFORMATION
  Report Type: 
  Country: None (occurrence: None)
  Receive Date: 20081003
  Receipt Date: 20080922
  Transmission Date: 20090506
  Serious: Yes (Death, Hospitalization, Other)
  Sender: FDA-Public Use
  Company Number: HU-JNJFOC-20080905342

PATIENT
  Sex: Male

DRUGS (6)
  1. DURAGESIC-100 [Suspect]
     Indication: PAIN
     Route: 062
  2. CISPLATIN [Concomitant]
     Indication: GASTRIC CANCER
  3. DIAPREL [Concomitant]
     Indication: BLOOD GLUCOSE INCREASED
  4. SODIUM CHLORIDE 0.9% [Concomitant]
     Indication: DEHYDRATION
  5. RED BLOOD CELL MASS [Concomitant]
     Indication: ANAEMIA
  6. METFORMIN HCL [Concomitant]
     Indication: BLOOD GLUCOSE INCREASED

REACTIONS (3)
  - CONFUSIONAL STATE [None]
  - GASTRIC CANCER [None]
  - INCONTINENCE [None]
